FAERS Safety Report 26206310 (Version 1)
Quarter: 2025Q4

REPORT INFORMATION
  Report Type: Spontaneous
  Country: TR (occurrence: TR)
  Receive Date: 20251229
  Receipt Date: 20251229
  Transmission Date: 20260118
  Serious: Yes (Hospitalization, Other)
  Sender: PHARMOBEDIENT CONSULTING, LLC
  Company Number: TR-Pharmobedient-000735

PATIENT
  Age: 47 Year
  Sex: Male

DRUGS (1)
  1. CABERGOLINE [Suspect]
     Active Substance: CABERGOLINE
     Indication: Prolactin-producing pituitary tumour

REACTIONS (2)
  - Meningitis [Recovered/Resolved]
  - Cerebrospinal fluid leakage [Recovered/Resolved]
